FAERS Safety Report 4771290-0 (Version None)
Quarter: 2005Q3

REPORT INFORMATION
  Report Type: 
  Country: None (occurrence: None)
  Receive Date: 20050915
  Receipt Date: 20050906
  Transmission Date: 20060218
  Serious: Yes (Hospitalization)
  Sender: FDA-Public Use
  Company Number: GR-MERCK-0509GRC00004

PATIENT
  Age: 42 Year
  Sex: Male

DRUGS (2)
  1. INVANZ [Suspect]
     Indication: RESPIRATORY TRACT INFECTION
     Route: 051
     Dates: start: 20050822, end: 20050901
  2. ACENOCOUMAROL [Concomitant]
     Indication: PULMONARY EMBOLISM
     Route: 048
     Dates: start: 20050801

REACTIONS (6)
  - ALANINE AMINOTRANSFERASE INCREASED [None]
  - ASPARTATE AMINOTRANSFERASE INCREASED [None]
  - DRUG INTERACTION [None]
  - GAMMA-GLUTAMYLTRANSFERASE INCREASED [None]
  - PLATELET COUNT INCREASED [None]
  - PULMONARY EMBOLISM [None]
